FAERS Safety Report 11199523 (Version 2)
Quarter: 2016Q1

REPORT INFORMATION
  Report Type: Spontaneous
  Country: JP (occurrence: JP)
  Receive Date: 20150618
  Receipt Date: 20160106
  Transmission Date: 20160525
  Serious: Yes (Hospitalization)
  Sender: FDA-Public Use
  Company Number: JP-MYLANLABS-2015M1019841

PATIENT

DRUGS (2)
  1. PREDNISOLONE. [Suspect]
     Active Substance: PREDNISOLONE
     Dosage: 20 MG/DAY AS A MAINTENANCE DOSE
     Route: 065
  2. PREDNISOLONE. [Suspect]
     Active Substance: PREDNISOLONE
     Indication: AUTOIMMUNE HEPATITIS
     Dosage: 30 MG/DAY, INITIALLY, LATER REDUCED TO 20 MG/DAY AS A MAINTENANCE DOSE
     Route: 065

REACTIONS (2)
  - Disseminated cryptococcosis [Recovering/Resolving]
  - Skin ulcer [Recovering/Resolving]
